FAERS Safety Report 23353369 (Version 1)
Quarter: 2023Q4

REPORT INFORMATION
  Report Type: Report from Study
  Country: CA (occurrence: CA)
  Receive Date: 20231231
  Receipt Date: 20231231
  Transmission Date: 20240109
  Serious: Yes (Other)
  Sender: FDA-Public Use
  Company Number: CA-JNJFOC-20231014119

PATIENT
  Age: 22 Year
  Sex: Female

DRUGS (5)
  1. REMICADE [Interacting]
     Active Substance: INFLIXIMAB
     Indication: Crohn^s disease
     Route: 041
     Dates: start: 20190905
  2. REMICADE [Interacting]
     Active Substance: INFLIXIMAB
     Route: 041
  3. CONCERTA [Interacting]
     Active Substance: METHYLPHENIDATE HYDROCHLORIDE
     Indication: Attention deficit hyperactivity disorder
     Route: 065
  4. METRONIDAZOLE [Interacting]
     Active Substance: METRONIDAZOLE
     Indication: Pelvic inflammatory disease
     Route: 065
     Dates: start: 20231016
  5. VYVANSE [Concomitant]
     Active Substance: LISDEXAMFETAMINE DIMESYLATE
     Indication: Attention deficit hyperactivity disorder

REACTIONS (4)
  - Pelvic inflammatory disease [Unknown]
  - Drug interaction [Recovered/Resolved]
  - Seizure like phenomena [Recovered/Resolved]
  - Crohn^s disease [Not Recovered/Not Resolved]

NARRATIVE: CASE EVENT DATE: 20231016
